FAERS Safety Report 22247070 (Version 1)
Quarter: 2023Q2

REPORT INFORMATION
  Report Type: Spontaneous
  Country: None (occurrence: US)
  Receive Date: 20230424
  Receipt Date: 20230424
  Transmission Date: 20230721
  Serious: No
  Sender: FDA-Public Use
  Company Number: US-Mission Pharmacal Company-2140743

PATIENT
  Age: 66 Year
  Sex: Female

DRUGS (3)
  1. THIOLA EC [Suspect]
     Active Substance: TIOPRONIN
     Indication: Nephrolithiasis
     Route: 048
     Dates: start: 20221118, end: 20230421
  2. CAPTOPRIL [Concomitant]
     Active Substance: CAPTOPRIL
  3. ESTROGENS [Concomitant]
     Active Substance: ESTROGENS

REACTIONS (2)
  - Hypersensitivity [Unknown]
  - Tachycardia [Unknown]
